FAERS Safety Report 7473920-1 (Version None)
Quarter: 2011Q2

REPORT INFORMATION
  Report Type: 
  Country: None (occurrence: None)
  Receive Date: 20110511
  Receipt Date: 20110505
  Transmission Date: 20111010
  Serious: Yes (Hospitalization)
  Sender: FDA-Public Use
  Company Number: GB-SANOFI-AVENTIS-2011SA027965

PATIENT
  Age: 48 Year
  Sex: Female

DRUGS (1)
  1. CLOPIDOGREL BISULFATE [Suspect]
     Indication: ANGIOPLASTY
     Route: 048
     Dates: start: 20110301, end: 20110414

REACTIONS (4)
  - OEDEMA [None]
  - RASH GENERALISED [None]
  - DYSPNOEA [None]
  - RASH PRURITIC [None]
